FAERS Safety Report 9054927 (Version 2)
Quarter: 2013Q2

REPORT INFORMATION
  Report Type: Report from Study
  Country: IT (occurrence: IT)
  Receive Date: 20130208
  Receipt Date: 20130503
  Transmission Date: 20140414
  Serious: Yes (Life-Threatening, Hospitalization, Other)
  Sender: FDA-Public Use
  Company Number: IT-ASTRAZENECA-2013SE08287

PATIENT
  Age: 19029 Day
  Sex: Male

DRUGS (16)
  1. ZD6474 [Suspect]
     Indication: THYROID CANCER
     Dosage: BLINDED THERAPY
     Route: 048
     Dates: start: 20071012, end: 20071206
  2. ZD6474 [Suspect]
     Indication: THYROID CANCER
     Dosage: BLINDED THERAPY
     Route: 048
     Dates: start: 20071228, end: 20100504
  3. ZD6474 [Suspect]
     Indication: THYROID CANCER
     Dosage: OPEN LABEL THERAPY
     Route: 048
     Dates: start: 20100505, end: 20100914
  4. ZD6474 [Suspect]
     Indication: THYROID CANCER
     Dosage: OPEN LABEL THERAPY
     Route: 048
     Dates: start: 20101003
  5. EUTIROX [Concomitant]
     Indication: HYPOTHYROIDISM
     Route: 048
     Dates: end: 20100727
  6. EUTIROX [Concomitant]
     Indication: HYPOTHYROIDISM
     Route: 048
     Dates: start: 20100728
  7. ROCALTROL [Concomitant]
     Indication: HYPOPARATHYROIDISM SECONDARY
     Route: 048
     Dates: end: 20090517
  8. ROCALTROL [Concomitant]
     Indication: HYPOPARATHYROIDISM SECONDARY
     Route: 048
     Dates: start: 20090518, end: 20100916
  9. ROCALTROL [Concomitant]
     Indication: HYPOPARATHYROIDISM SECONDARY
     Route: 048
     Dates: start: 20100917, end: 20101018
  10. ROCALTROL [Concomitant]
     Indication: HYPOPARATHYROIDISM SECONDARY
     Route: 048
     Dates: start: 20101019
  11. CALCIUM SANDOZ [Concomitant]
     Indication: HYPOPARATHYROIDISM SECONDARY
     Route: 048
     Dates: end: 20090517
  12. CALCIUM SANDOZ [Concomitant]
     Indication: HYPOPARATHYROIDISM SECONDARY
     Route: 048
     Dates: start: 20090518, end: 20090807
  13. CALCIUM SANDOZ [Concomitant]
     Indication: HYPOPARATHYROIDISM SECONDARY
     Route: 048
     Dates: start: 20090808, end: 20100916
  14. CALCIUM SANDOZ [Concomitant]
     Indication: HYPOPARATHYROIDISM SECONDARY
     Dosage: 2.0 DAILY
     Route: 048
     Dates: start: 20101017, end: 20101018
  15. CALCIUM SANDOZ [Concomitant]
     Indication: HYPOPARATHYROIDISM SECONDARY
     Dosage: 1.0 DAILY
     Route: 048
     Dates: start: 20101019
  16. BLOPRESID [Concomitant]
     Indication: HYPERTENSION
     Route: 048
     Dates: start: 20081202

REACTIONS (1)
  - Pulmonary embolism [Recovered/Resolved]
